FAERS Safety Report 14528030 (Version 1)
Quarter: 2018Q1

REPORT INFORMATION
  Report Type: Report from Study
  Country: US (occurrence: US)
  Receive Date: 20180213
  Receipt Date: 20180213
  Transmission Date: 20180509
  Serious: Yes (Other)
  Sender: FDA-Public Use
  Company Number: US-AMGEN-USASL2018016639

PATIENT
  Sex: Female

DRUGS (7)
  1. NPLATE [Suspect]
     Active Substance: ROMIPLOSTIM
     Dosage: 1.5 MUG/KG, UNK
     Route: 065
     Dates: start: 201710
  2. NPLATE [Suspect]
     Active Substance: ROMIPLOSTIM
     Dosage: 1.5 MUG/KG, UNK
     Route: 065
     Dates: start: 20171222
  3. NPLATE [Suspect]
     Active Substance: ROMIPLOSTIM
     Indication: PRODUCT USED FOR UNKNOWN INDICATION
     Dosage: 1.5 MUG/KG, UNK
     Route: 065
     Dates: start: 201703, end: 201707
  4. EFFEXOR [Concomitant]
     Active Substance: VENLAFAXINE HYDROCHLORIDE
     Dosage: 37.5 UNK, UNK
  5. NPLATE [Suspect]
     Active Substance: ROMIPLOSTIM
     Dosage: 1.5 MUG/KG, UNK
     Route: 065
     Dates: start: 20180119
  6. NPLATE [Suspect]
     Active Substance: ROMIPLOSTIM
     Dosage: 2.5 MUG/KG, UNK
     Route: 065
     Dates: start: 20180105
  7. LIPITOR [Concomitant]
     Active Substance: ATORVASTATIN CALCIUM
     Dosage: 10 UNK, UNK

REACTIONS (2)
  - Platelet count abnormal [Unknown]
  - Splenectomy [Unknown]

NARRATIVE: CASE EVENT DATE: 201707
